FAERS Safety Report 5563686-4 (Version None)
Quarter: 2007Q4

REPORT INFORMATION
  Report Type: 
  Country: None (occurrence: None)
  Receive Date: 20071217
  Receipt Date: 20070724
  Transmission Date: 20080405
  Serious: No
  Sender: FDA-Public Use
  Company Number: US-ASTRAZENECA-2007UW17899

PATIENT
  Age: 59 Year
  Sex: Male

DRUGS (3)
  1. CRESTOR [Suspect]
     Route: 048
  2. TOPROL-XL [Concomitant]
  3. VITAMINS [Concomitant]

REACTIONS (1)
  - EPISTAXIS [None]
